FAERS Safety Report 19955427 (Version 1)
Quarter: 2021Q4

REPORT INFORMATION
  Report Type: Spontaneous
  Country: CN (occurrence: CN)
  Receive Date: 20211014
  Receipt Date: 20211014
  Transmission Date: 20220304
  Serious: Yes (Other)
  Sender: FDA-Public Use
  Company Number: CN-PFIZER INC-202101361302

PATIENT
  Age: 65 Year
  Sex: Female

DRUGS (1)
  1. VENLAFAXINE HCL [Suspect]
     Active Substance: VENLAFAXINE HYDROCHLORIDE
     Indication: Depression
     Dosage: 1 DF, 1X/DAY
     Route: 048
     Dates: start: 20210415, end: 20210608

REACTIONS (5)
  - Pyelocaliectasis [Unknown]
  - Chronic gastritis [Unknown]
  - Colitis [Unknown]
  - Gastrointestinal wall thickening [Unknown]
  - Constipation [Recovering/Resolving]

NARRATIVE: CASE EVENT DATE: 20210608
